FAERS Safety Report 18579187 (Version 1)
Quarter: 2020Q4

REPORT INFORMATION
  Report Type: Spontaneous
  Country: US (occurrence: US)
  Receive Date: 20201204
  Receipt Date: 20201204
  Transmission Date: 20210114
  Serious: No
  Sender: FDA-Public Use
  Company Number: None

PATIENT
  Age: 21 Month
  Sex: Male
  Weight: 11.7 kg

DRUGS (1)
  1. KELLEYS ADVANCED HAND SANITIZER [Suspect]
     Active Substance: ALCOHOL
     Indication: COVID-19 PROPHYLAXIS
     Dosage: ?          QUANTITY:0.33 HAND PUMP;OTHER FREQUENCY:1 TIME;?
     Route: 061

REACTIONS (5)
  - Pruritus [None]
  - Peripheral swelling [None]
  - Urticaria [None]
  - Intentional product use issue [None]
  - Drug hypersensitivity [None]

NARRATIVE: CASE EVENT DATE: 20201202
